FAERS Safety Report 15962031 (Version 1)
Quarter: 2019Q1

REPORT INFORMATION
  Report Type: Report from Study
  Country: CA (occurrence: CA)
  Receive Date: 20190214
  Receipt Date: 20190214
  Transmission Date: 20190417
  Serious: Yes (Other)
  Sender: FDA-Public Use
  Company Number: CA-JNJFOC-20190117049

PATIENT
  Age: 52 Year
  Sex: Female
  Weight: 45 kg

DRUGS (1)
  1. STELARA [Suspect]
     Active Substance: USTEKINUMAB
     Indication: CROHN^S DISEASE
     Dosage: STRENGTH = 130 MG
     Route: 042
     Dates: start: 20181109

REACTIONS (7)
  - Syncope [Unknown]
  - Injury [Unknown]
  - Fatigue [Unknown]
  - Abdominal pain [Recovering/Resolving]
  - Toothache [Unknown]
  - Spinal pain [Unknown]
  - Dizziness [Unknown]

NARRATIVE: CASE EVENT DATE: 2019
